FAERS Safety Report 20869084 (Version 1)
Quarter: 2022Q2

REPORT INFORMATION
  Report Type: Spontaneous
  Country: US (occurrence: None)
  Receive Date: 20220520
  Receipt Date: 20220520
  Transmission Date: 20220721
  Serious: No
  Sender: FDA-Public Use
  Company Number: None

PATIENT

DRUGS (3)
  1. DUPIXENT [Suspect]
     Active Substance: DUPILUMAB
     Indication: Product used for unknown indication
     Route: 058
  2. BENADRYL [Suspect]
     Active Substance: DIPHENHYDRAMINE HYDROCHLORIDE
  3. ALBUTEROL [Suspect]
     Active Substance: ALBUTEROL

REACTIONS (9)
  - Injection site reaction [None]
  - Blister [None]
  - Injection site rash [None]
  - Rash papular [None]
  - Chest discomfort [None]
  - Wheezing [None]
  - Drug hypersensitivity [None]
  - Cross sensitivity reaction [None]
  - Contraindicated product administered [None]
